FAERS Safety Report 23243536 (Version 3)
Quarter: 2024Q1

REPORT INFORMATION
  Report Type: Spontaneous
  Country: US (occurrence: US)
  Receive Date: 20231130
  Receipt Date: 20240229
  Transmission Date: 20240410
  Serious: No
  Sender: FDA-Public Use
  Company Number: US-002147023-NVSC2023US254382

PATIENT
  Sex: Female

DRUGS (2)
  1. MEKINIST [Suspect]
     Active Substance: TRAMETINIB DIMETHYL SULFOXIDE
     Indication: Benign neoplasm
     Dosage: 2 MG, QD
     Route: 048
     Dates: start: 202311
  2. MEKINIST [Suspect]
     Active Substance: TRAMETINIB DIMETHYL SULFOXIDE
     Indication: Autonomic neuropathy

REACTIONS (5)
  - Rosacea [Unknown]
  - Ageusia [Unknown]
  - Oedema [Unknown]
  - Swelling [Unknown]
  - Hair growth abnormal [Unknown]
